FAERS Safety Report 14700523 (Version 1)
Quarter: 2018Q1

REPORT INFORMATION
  Report Type: Spontaneous
  Country: US (occurrence: US)
  Receive Date: 20180330
  Receipt Date: 20180330
  Transmission Date: 20180509
  Serious: Yes (Hospitalization)
  Sender: FDA-Public Use
  Company Number: None

PATIENT
  Age: 1 Month
  Sex: Female
  Weight: 4 kg

DRUGS (1)
  1. FENTANYL 25 MCG/ML 55 ML PREFILLED SYRINGE [Suspect]
     Active Substance: FENTANYL

REACTIONS (3)
  - Agitation [None]
  - Device failure [None]
  - Hypertension [None]

NARRATIVE: CASE EVENT DATE: 201801
